FAERS Safety Report 13495285 (Version 2)
Quarter: 2017Q2

REPORT INFORMATION
  Report Type: Report from Study
  Country: US (occurrence: US)
  Receive Date: 20170428
  Receipt Date: 20170502
  Transmission Date: 20170830
  Serious: Yes (Hospitalization, Other)
  Sender: FDA-Public Use
  Company Number: US-ROCHE-1922908

PATIENT
  Age: 72 Year
  Sex: Male

DRUGS (8)
  1. LIDOCAINE/PRILOCAINE [Concomitant]
     Active Substance: LIDOCAINE\PRILOCAINE
  2. OXYCODONE [Concomitant]
     Active Substance: OXYCODONE
     Indication: PAIN
     Dosage: 1 TABLET ORALLY EVERY 4 TO 6 HOURS
     Route: 048
  3. NEXIUM [Concomitant]
     Active Substance: ESOMEPRAZOLE MAGNESIUM
     Route: 048
  4. MESNA. [Concomitant]
     Active Substance: MESNA
     Route: 048
  5. ALLOPURINOL. [Concomitant]
     Active Substance: ALLOPURINOL
     Route: 048
  6. OXYCONTIN [Concomitant]
     Active Substance: OXYCODONE HYDROCHLORIDE
     Route: 048
  7. RITUXIMAB [Suspect]
     Active Substance: RITUXIMAB
     Indication: PRODUCT USED FOR UNKNOWN INDICATION
     Route: 065
  8. ACYCLOVIR. [Concomitant]
     Active Substance: ACYCLOVIR
     Route: 048

REACTIONS (15)
  - Fatigue [Unknown]
  - Acute kidney injury [Unknown]
  - Abdominal pain [Unknown]
  - Lymphadenopathy [Unknown]
  - Dehydration [Unknown]
  - Thrombocytopenia [Unknown]
  - Gastritis [Unknown]
  - Gastrointestinal haemorrhage [Unknown]
  - Local swelling [Unknown]
  - Syncope [Unknown]
  - Night sweats [Unknown]
  - Oedema peripheral [Unknown]
  - Weight decreased [Unknown]
  - Urticaria [Unknown]
  - Pancytopenia [Unknown]

NARRATIVE: CASE EVENT DATE: 20170117
